FAERS Safety Report 6521496-5 (Version None)
Quarter: 2009Q4

REPORT INFORMATION
  Report Type: 
  Country: None (occurrence: None)
  Receive Date: 20091222
  Receipt Date: 20091211
  Transmission Date: 20100525
  Serious: Yes (Life-Threatening, Hospitalization, Other)
  Sender: FDA-Public Use
  Company Number: DSA_42198_2009

PATIENT
  Age: 21 Year
  Sex: Female
  Weight: 54.8852 kg

DRUGS (2)
  1. WELLBUTRIN XL [Suspect]
     Indication: DRUG USE FOR UNKNOWN INDICATION
     Dosage: (300 MG QD ORAL)
     Route: 048
  2. ORTHO TRI-CYCLEN LO [Concomitant]

REACTIONS (2)
  - ELECTROLYTE IMBALANCE [None]
  - GRAND MAL CONVULSION [None]
